FAERS Safety Report 6003126-4 (Version None)
Quarter: 2008Q4

REPORT INFORMATION
  Report Type: 
  Country: None (occurrence: None)
  Receive Date: 20081216
  Receipt Date: 20081209
  Transmission Date: 20090506
  Serious: Yes (Death, Hospitalization, Other)
  Sender: FDA-Public Use
  Company Number: GB-TEVA-182202ISR

PATIENT
  Age: 1 Year
  Sex: Male

DRUGS (2)
  1. PREDNISOLONE [Suspect]
     Indication: NEPHROTIC SYNDROME
  2. CYCLOSPORINE [Suspect]
     Indication: NEPHROTIC SYNDROME

REACTIONS (5)
  - DRUG INEFFECTIVE [None]
  - HAEMODIALYSIS [None]
  - NEPHROPATHY TOXIC [None]
  - PANCREATITIS [None]
  - RENAL FAILURE CHRONIC [None]
